FAERS Safety Report 4577579-2 (Version None)
Quarter: 2005Q1

REPORT INFORMATION
  Report Type: 
  Country: None (occurrence: None)
  Receive Date: 20050210
  Receipt Date: 20030407
  Transmission Date: 20050727
  Serious: Yes (Hospitalization, Other)
  Sender: FDA-Public Use
  Company Number: US-MERCK-0304USA00802

PATIENT
  Age: 70 Year
  Sex: Female
  Weight: 84 kg

DRUGS (7)
  1. VIOXX [Suspect]
     Indication: ARTHRITIS
     Route: 048
     Dates: start: 19991128, end: 20000315
  2. SYNTHROID [Concomitant]
     Route: 065
  3. ESTRACE [Concomitant]
     Route: 065
  4. ACCUPRIL [Concomitant]
     Route: 065
     Dates: end: 20030101
  5. LASIX [Concomitant]
     Route: 065
  6. POTASSIUM (UNSPECIFIED) [Concomitant]
     Route: 065
  7. TYLENOL [Concomitant]
     Route: 065
     Dates: start: 19901001, end: 20041027

REACTIONS (7)
  - GLOBAL AMNESIA [None]
  - HYPERTENSION [None]
  - INJURY [None]
  - ISCHAEMIC STROKE [None]
  - LACUNAR INFARCTION [None]
  - TRANSIENT ISCHAEMIC ATTACK [None]
  - URINARY TRACT INFECTION [None]
